FAERS Safety Report 9055154 (Version 1)
Quarter: 2013Q1

REPORT INFORMATION
  Report Type: Spontaneous
  Country: US (occurrence: US)
  Receive Date: 20130206
  Receipt Date: 20130206
  Transmission Date: 20140127
  Serious: Yes (Other)
  Sender: FDA-Public Use
  Company Number: US-JNJFOC-20130112831

PATIENT
  Age: 65 Year
  Sex: Female

DRUGS (5)
  1. INFLIXIMAB, RECOMBINANT [Suspect]
     Indication: POLYCHONDRITIS
     Route: 042
  2. GLUCOCORTICOIDS [Suspect]
     Indication: POLYCHONDRITIS
     Route: 065
  3. CYCLOPHOSPHAMIDE [Suspect]
     Indication: POLYCHONDRITIS
     Route: 065
  4. PREDNISONE [Concomitant]
     Indication: POLYCHONDRITIS
     Route: 065
  5. PREDNISONE [Concomitant]
     Indication: POLYCHONDRITIS
     Route: 065

REACTIONS (2)
  - Drug ineffective [Recovering/Resolving]
  - Ear disorder [Recovering/Resolving]
